FAERS Safety Report 10870179 (Version 1)
Quarter: 2015Q1

REPORT INFORMATION
  Report Type: Report from Study
  Country: US (occurrence: US)
  Receive Date: 20150226
  Receipt Date: 20150226
  Transmission Date: 20150721
  Serious: Yes (Other)
  Sender: FDA-Public Use
  Company Number: US-BAYER-2015-027744

PATIENT
  Age: 14 Year

DRUGS (1)
  1. SORAFENIB [Suspect]
     Active Substance: SORAFENIB
     Indication: ACUTE MYELOID LEUKAEMIA RECURRENT
     Dosage: DAILY DOSE 150 MG/M2

REACTIONS (4)
  - Thrombocytopenia [None]
  - Transaminases increased [None]
  - Graft versus host disease [Recovering/Resolving]
  - Product use issue [None]
